FAERS Safety Report 7412712-6 (Version None)
Quarter: 2011Q2

REPORT INFORMATION
  Report Type: 
  Country: None (occurrence: None)
  Receive Date: 20110413
  Receipt Date: 20110406
  Transmission Date: 20111010
  Serious: Yes (Other)
  Sender: FDA-Public Use
  Company Number: A0851866A

PATIENT
  Age: 29 Year
  Sex: Female

DRUGS (2)
  1. UNSPECIFIED MEDICATION [Suspect]
     Indication: URINARY TRACT INFECTION
  2. LAMICTAL [Suspect]
     Route: 065
     Dates: start: 20071217

REACTIONS (3)
  - CONVULSION [None]
  - OVERDOSE [None]
  - INFLUENZA [None]
